FAERS Safety Report 5696467-1 (Version None)
Quarter: 2008Q2

REPORT INFORMATION
  Report Type: 
  Country: None (occurrence: None)
  Receive Date: 20080404
  Receipt Date: 20080404
  Transmission Date: 20081010
  Serious: Yes (Life-Threatening, Hospitalization)
  Sender: FDA-Public Use
  Company Number: None

PATIENT
  Sex: Female
  Weight: 58.9676 kg

DRUGS (1)
  1. ETODOLAC [Suspect]
     Indication: BACK PAIN
     Dates: start: 20080108, end: 20080131

REACTIONS (5)
  - BLOOD PRESSURE IMMEASURABLE [None]
  - CONVULSION [None]
  - HAEMORRHAGE [None]
  - LOSS OF CONSCIOUSNESS [None]
  - LOWER GASTROINTESTINAL HAEMORRHAGE [None]
